FAERS Safety Report 20426801 (Version 1)
Quarter: 2022Q1

REPORT INFORMATION
  Report Type: Report from Study
  Country: US (occurrence: US)
  Receive Date: 20220204
  Receipt Date: 20220204
  Transmission Date: 20220423
  Serious: No
  Sender: FDA-Public Use
  Company Number: US-EXELIXIS-CABO-21045982

PATIENT
  Age: 76 Year
  Sex: Male

DRUGS (3)
  1. CABOMETYX [Suspect]
     Active Substance: CABOZANTINIB S-MALATE
     Indication: Product used for unknown indication
     Dosage: 40 MG, QD
     Route: 048
     Dates: start: 202111, end: 202111
  2. CABOMETYX [Suspect]
     Active Substance: CABOZANTINIB S-MALATE
     Dosage: 80 MG, QD (DOUBLE DOSE)
     Route: 048
     Dates: start: 202111, end: 202111
  3. CABOMETYX [Suspect]
     Active Substance: CABOZANTINIB S-MALATE
     Dosage: 40 MG, QD
     Route: 048
     Dates: start: 202111

REACTIONS (10)
  - Pruritus [Unknown]
  - Oral pain [Unknown]
  - Fatigue [Unknown]
  - Muscle spasms [Unknown]
  - Decreased appetite [Unknown]
  - Nausea [Unknown]
  - Stomatitis [Unknown]
  - Diarrhoea [Unknown]
  - Accidental overdose [Unknown]
  - Intentional dose omission [Unknown]

NARRATIVE: CASE EVENT DATE: 20211101
